FAERS Safety Report 7611905-2 (Version None)
Quarter: 2011Q3

REPORT INFORMATION
  Report Type: 
  Country: None (occurrence: None)
  Receive Date: 20110715
  Receipt Date: 20110707
  Transmission Date: 20111222
  Serious: Yes (Other)
  Sender: FDA-Public Use
  Company Number: US-SANOFI-AVENTIS-2011SA043506

PATIENT
  Sex: Male

DRUGS (6)
  1. COZAAR [Concomitant]
  2. PLAVIX [Suspect]
     Indication: STENT PLACEMENT
     Route: 065
     Dates: start: 20100901
  3. PURINETHOL [Concomitant]
     Dates: start: 19980101
  4. ASACOL [Concomitant]
     Dosage: 8 PILLS DAILY
     Dates: start: 19930101
  5. LIPITOR [Concomitant]
     Dates: start: 20100101
  6. LIPITOR [Concomitant]
     Indication: STENT PLACEMENT
     Dates: start: 20100101

REACTIONS (5)
  - LARGE INTESTINE PERFORATION [None]
  - GASTROINTESTINAL HAEMORRHAGE [None]
  - HAEMATOCHEZIA [None]
  - GASTRITIS [None]
  - FAECES DISCOLOURED [None]
